FAERS Safety Report 19849359 (Version 1)
Quarter: 2021Q3

REPORT INFORMATION
  Report Type: Spontaneous
  Country: DE (occurrence: DE)
  Receive Date: 20210918
  Receipt Date: 20210918
  Transmission Date: 20211014
  Serious: No
  Sender: FDA-Public Use
  Company Number: DE-HORMOSAN PHARMA GMBH-2020-09441

PATIENT
  Age: 25 Year
  Sex: Female

DRUGS (2)
  1. MUNALEA 20 0,02 MG/0,15 MG FILMTABLETTEN [Suspect]
     Active Substance: DESOGESTREL\ETHINYL ESTRADIOL
     Dosage: UNK
     Route: 065
     Dates: start: 202009
  2. MUNALEA 20 0,02 MG/0,15 MG FILMTABLETTEN [Suspect]
     Active Substance: DESOGESTREL\ETHINYL ESTRADIOL
     Indication: CONTRACEPTION
     Dosage: UNK (SEVERAL YEARS)
     Route: 065

REACTIONS (1)
  - Acne [Unknown]

NARRATIVE: CASE EVENT DATE: 202009
